FAERS Safety Report 14989254 (Version 1)
Quarter: 2018Q2

REPORT INFORMATION
  Report Type: Report from Study
  Country: BR (occurrence: BR)
  Receive Date: 20180608
  Receipt Date: 20180608
  Transmission Date: 20180711
  Serious: Yes (Death, Hospitalization, Other)
  Sender: FDA-Public Use
  Company Number: BR-ACTELION-A-CH2018-173647

PATIENT
  Age: 22 Year
  Sex: Male

DRUGS (1)
  1. ZAVESCA [Suspect]
     Active Substance: MIGLUSTAT
     Indication: MUCOPOLYSACCHARIDOSIS III
     Dosage: UNK
     Route: 048
     Dates: end: 201708

REACTIONS (7)
  - Weight decreased [Unknown]
  - General physical health deterioration [Unknown]
  - Pneumonia [Unknown]
  - Malnutrition [Unknown]
  - Diarrhoea [Unknown]
  - Death [Fatal]
  - Laryngectomy [Unknown]

NARRATIVE: CASE EVENT DATE: 201708
